FAERS Safety Report 20635114 (Version 3)
Quarter: 2022Q2

REPORT INFORMATION
  Report Type: Report from Study
  Country: US (occurrence: US)
  Receive Date: 20220325
  Receipt Date: 20220427
  Transmission Date: 20220721
  Serious: Yes (Hospitalization, Other)
  Sender: FDA-Public Use
  Company Number: US-HORIZON THERAPEUTICS-HZN-2022-001839

PATIENT

DRUGS (2)
  1. KRYSTEXXA [Suspect]
     Active Substance: PEGLOTICASE
     Indication: Product used for unknown indication
     Dosage: 1ST INFUSION
     Route: 042
     Dates: start: 20220302
  2. KRYSTEXXA [Suspect]
     Active Substance: PEGLOTICASE
     Dosage: 4TH INFUSION
     Route: 042

REACTIONS (8)
  - Enzyme level increased [Unknown]
  - Atrial fibrillation [Unknown]
  - Hyperhidrosis [Unknown]
  - Back pain [Unknown]
  - Chest discomfort [Unknown]
  - Hypotension [Unknown]
  - Blood uric acid abnormal [Unknown]
  - Gout [Unknown]

NARRATIVE: CASE EVENT DATE: 20220302
